FAERS Safety Report 22604988 (Version 1)
Quarter: 2023Q2

REPORT INFORMATION
  Report Type: Spontaneous
  Country: PT (occurrence: PT)
  Receive Date: 20230615
  Receipt Date: 20230615
  Transmission Date: 20230721
  Serious: Yes (Hospitalization, Other)
  Sender: FDA-Public Use
  Company Number: PT-FreseniusKabi-FK202307843

PATIENT
  Age: 76 Year
  Sex: Female

DRUGS (2)
  1. TRASTUZUMAB [Suspect]
     Active Substance: TRASTUZUMAB
     Indication: Breast neoplasm
     Dosage: UNK
  2. PACLITAXEL [Suspect]
     Active Substance: PACLITAXEL
     Indication: Breast neoplasm
     Dosage: UNK

REACTIONS (2)
  - Pneumocystis jirovecii infection [Unknown]
  - Immunodeficiency [Unknown]
